FAERS Safety Report 17693630 (Version 1)
Quarter: 2020Q2

REPORT INFORMATION
  Report Type: Spontaneous
  Country: US (occurrence: US)
  Receive Date: 20200422
  Receipt Date: 20200422
  Transmission Date: 20200714
  Serious: No
  Sender: FDA-Public Use
  Company Number: None

PATIENT
  Age: 73 Year
  Sex: Female
  Weight: 48.15 kg

DRUGS (6)
  1. MAGNESIUM [Concomitant]
     Active Substance: MAGNESIUM
  2. METRONIDAZOLE. [Suspect]
     Active Substance: METRONIDAZOLE
     Indication: POST PROCEDURAL INFECTION
     Dosage: ?          QUANTITY:1 TABLET(S);?
     Route: 048
     Dates: start: 20200128, end: 20200204
  3. MULTI VIT [Concomitant]
     Active Substance: VITAMINS
  4. D-3 [Concomitant]
     Active Substance: CHOLECALCIFEROL
  5. PROBIOTICS [Concomitant]
     Active Substance: PROBIOTICS NOS
  6. ENZYMES [Concomitant]

REACTIONS (17)
  - Asthenia [None]
  - Constipation [None]
  - Dizziness [None]
  - Headache [None]
  - Confusional state [None]
  - Chills [None]
  - Eye pain [None]
  - Anxiety [None]
  - Dysgeusia [None]
  - Nausea [None]
  - Feeling abnormal [None]
  - Diarrhoea [None]
  - Decreased appetite [None]
  - Depression [None]
  - Arthralgia [None]
  - Fatigue [None]
  - Glossodynia [None]

NARRATIVE: CASE EVENT DATE: 20200128
